FAERS Safety Report 4462863-3 (Version None)
Quarter: 2004Q3

REPORT INFORMATION
  Report Type: 
  Country: None (occurrence: None)
  Receive Date: 20040927
  Receipt Date: 20040915
  Transmission Date: 20050211
  Serious: Yes (Other)
  Sender: FDA-Public Use
  Company Number: 2004067005

PATIENT
  Age: 67 Year
  Sex: Male

DRUGS (8)
  1. DILANTIN [Suspect]
     Indication: PETIT MAL EPILEPSY
     Dosage: 330 MG (2 IN 1 D),
  2. DILANTIN [Suspect]
  3. KARVEA HCT (HYDROCHLOROTHIAZIDE, IRBESARTAN) [Concomitant]
  4. ATENOLOL [Concomitant]
  5. SIMVASTATIN [Concomitant]
  6. ACETYLSALICYLATE CALCIUM (ACETYLSALICYLATE CALCIUM) [Concomitant]
  7. MOMETASONE FUROATE [Concomitant]
  8. ACETAMINOPHEN [Concomitant]

REACTIONS (3)
  - ANTICONVULSANT DRUG LEVEL DECREASED [None]
  - GRAND MAL CONVULSION [None]
  - PHARMACEUTICAL PRODUCT COMPLAINT [None]
